FAERS Safety Report 5281213-6 (Version None)
Quarter: 2007Q1

REPORT INFORMATION
  Report Type: 
  Country: None (occurrence: None)
  Receive Date: 20061220
  Receipt Date: 20060717
  Transmission Date: 20070707
  Serious: Yes (Other)
  Sender: FDA-Public Use
  Company Number: 2006088377

PATIENT
  Age: 78 Year
  Sex: Male

DRUGS (2)
  1. CARDURA [Suspect]
     Indication: BENIGN PROSTATIC HYPERPLASIA
     Dosage: 4 MG
  2. CARDURA [Suspect]
     Indication: HYPERTENSION
     Dosage: 4 MG

REACTIONS (1)
  - BLOOD PRESSURE INADEQUATELY CONTROLLED [None]
